FAERS Safety Report 7622790-7 (Version None)
Quarter: 2011Q3

REPORT INFORMATION
  Report Type: 
  Country: None (occurrence: None)
  Receive Date: 20110719
  Receipt Date: 20110719
  Transmission Date: 20111222
  Serious: No
  Sender: FDA-Public Use
  Company Number: None

PATIENT
  Sex: Male
  Weight: 90.7194 kg

DRUGS (1)
  1. AMOXICILLIN AND CLAVULANATE POTASSIUM [Suspect]
     Indication: CELLULITIS
     Dosage: AMOXICILIN/CLAVULAN TAB 875 MG. - 125 MG 2 TAB DAILY ORAL
     Route: 048
     Dates: start: 20110616, end: 20110618

REACTIONS (1)
  - DIARRHOEA [None]
